FAERS Safety Report 15125776 (Version 2)
Quarter: 2018Q3

REPORT INFORMATION
  Report Type: Spontaneous
  Country: FR (occurrence: FR)
  Receive Date: 20180710
  Receipt Date: 20180727
  Transmission Date: 20181010
  Serious: Yes (Other)
  Sender: FDA-Public Use
  Company Number: FR-PFIZER INC-2018275023

PATIENT
  Age: 39 Year
  Sex: Female

DRUGS (3)
  1. MEPHENESIN [Suspect]
     Active Substance: MEPHENESIN
     Dosage: UP TO 36G, FOR A YEAR
  2. ALPRAZOLAM. [Suspect]
     Active Substance: ALPRAZOLAM
     Indication: EUPHORIC MOOD
  3. MEPHENESIN [Suspect]
     Active Substance: MEPHENESIN
     Dosage: 9 G, 1X/DAY

REACTIONS (3)
  - Drug abuse [Unknown]
  - Overdose [Unknown]
  - Drug dependence [Unknown]
